FAERS Safety Report 25061345 (Version 1)
Quarter: 2025Q1

REPORT INFORMATION
  Report Type: Spontaneous
  Country: RS (occurrence: RS)
  Receive Date: 20250311
  Receipt Date: 20250311
  Transmission Date: 20250409
  Serious: Yes (Hospitalization, Other)
  Sender: Steriscience PTE
  Company Number: RS-STERISCIENCE B.V.-2025-ST-000417

PATIENT
  Age: 32 Year
  Sex: Female

DRUGS (3)
  1. BUPIVACAINE [Suspect]
     Active Substance: BUPIVACAINE
     Indication: Epidural anaesthesia
     Route: 008
  2. FENTANYL [Suspect]
     Active Substance: FENTANYL
     Indication: Epidural anaesthesia
     Route: 008
  3. SALINE [Suspect]
     Active Substance: SODIUM CHLORIDE
     Indication: Application site anaesthesia
     Route: 065

REACTIONS (2)
  - Myelitis transverse [None]
  - Maternal exposure during delivery [Unknown]
